FAERS Safety Report 7339144-3 (Version None)
Quarter: 2011Q1

REPORT INFORMATION
  Report Type: 
  Country: None (occurrence: None)
  Receive Date: 20110308
  Receipt Date: 20110225
  Transmission Date: 20110831
  Serious: Yes (Hospitalization)
  Sender: FDA-Public Use
  Company Number: PHHO2011GB01748

PATIENT
  Sex: Male

DRUGS (14)
  1. ALISKIREN [Suspect]
     Dosage: STEP 2 RUN-IN PHASE
     Dates: start: 20101221, end: 20110124
  2. COMPARATOR ENALAPRIL [Suspect]
     Dosage: STEP 2 RUN-IN PAHSE
     Dates: start: 20101221, end: 20110124
  3. BLINDED ALISKIREN [Suspect]
     Dosage: NO TREATMENT
     Route: 048
  4. ACE INHIBITOR NOS [Concomitant]
  5. METFORMIN [Concomitant]
     Indication: DIABETES MELLITUS
  6. COMPARATOR ENALAPRIL [Suspect]
     Indication: CARDIAC FAILURE
     Route: 048
  7. BLINDED NO TREATMENT RECEIVED [Suspect]
     Dosage: NO TREATMENT
     Route: 048
  8. BUMETANIDE [Concomitant]
     Indication: CARDIAC FAILURE
     Dosage: UNK
  9. WARFARIN [Concomitant]
     Indication: ATRIAL FIBRILLATION
  10. NEBIVOLOL [Concomitant]
     Indication: CARDIAC FAILURE
     Dosage: UNK
  11. ALISKIREN [Suspect]
     Indication: CARDIAC FAILURE
     Route: 048
  12. BLINDED ENALAPRIL [Suspect]
     Dosage: NO TREATMENT
     Route: 048
  13. DIURETICS [Concomitant]
  14. LEVOTHYROXINE SODIUM [Concomitant]
     Indication: HYPOTHYROIDISM
     Dosage: UNK

REACTIONS (6)
  - CARDIAC FAILURE [None]
  - DYSPNOEA [None]
  - RENAL FAILURE ACUTE [None]
  - URINARY TRACT INFECTION [None]
  - URINE OUTPUT DECREASED [None]
  - OEDEMA [None]
